FAERS Safety Report 16175332 (Version 1)
Quarter: 2019Q2

REPORT INFORMATION
  Report Type: Spontaneous
  Country: US (occurrence: US)
  Receive Date: 20190409
  Receipt Date: 20190409
  Transmission Date: 20190711
  Serious: No
  Sender: FDA-Public Use
  Company Number: US-OPTINOSE US, INC-2019OPT000133

PATIENT
  Age: 51 Year
  Sex: Female

DRUGS (2)
  1. XHANCE [Suspect]
     Active Substance: FLUTICASONE PROPIONATE
     Indication: PRODUCT USED FOR UNKNOWN INDICATION
     Route: 045
  2. XHANCE [Suspect]
     Active Substance: FLUTICASONE PROPIONATE
     Route: 045

REACTIONS (3)
  - Epistaxis [Unknown]
  - Nasal dryness [Unknown]
  - Epistaxis [Unknown]

NARRATIVE: CASE EVENT DATE: 201812
